FAERS Safety Report 21856278 (Version 2)
Quarter: 2023Q2

REPORT INFORMATION
  Report Type: Report from Study
  Country: CA (occurrence: CA)
  Receive Date: 20230112
  Receipt Date: 20230404
  Transmission Date: 20230721
  Serious: Yes (Other)
  Sender: FDA-Public Use
  Company Number: CA-JNJFOC-20230117959

PATIENT
  Age: 44 Year
  Sex: Female

DRUGS (2)
  1. STELARA [Suspect]
     Active Substance: USTEKINUMAB
     Indication: Crohn^s disease
     Dosage: THERAPY START DATE ALSO MENTIONED AS 20-NOV-2020
     Route: 058
     Dates: start: 20210112
  2. STELARA [Suspect]
     Active Substance: USTEKINUMAB

REACTIONS (4)
  - Haematochezia [Unknown]
  - Irritable bowel syndrome [Not Recovered/Not Resolved]
  - Stress [Unknown]
  - Inappropriate schedule of product administration [Unknown]
